FAERS Safety Report 24185286 (Version 1)
Quarter: 2024Q3

REPORT INFORMATION
  Report Type: Spontaneous
  Country: US (occurrence: US)
  Receive Date: 20240807
  Receipt Date: 20240807
  Transmission Date: 20241017
  Serious: No
  Sender: GLENMARK
  Company Number: US-GLENMARK PHARMACEUTICALS-2024GMK091872

PATIENT

DRUGS (1)
  1. RYALTRIS [Suspect]
     Active Substance: MOMETASONE FUROATE MONOHYDRATE\OLOPATADINE HYDROCHLORIDE
     Indication: Sinus disorder
     Dosage: OD (ONCE IN EACH NOSTRIL, ONCE A DAY)
     Route: 045
     Dates: start: 202406

REACTIONS (2)
  - Product use in unapproved indication [Unknown]
  - Device issue [Unknown]

NARRATIVE: CASE EVENT DATE: 20240620
